FAERS Safety Report 6189758-1 (Version None)
Quarter: 2009Q2

REPORT INFORMATION
  Report Type: 
  Country: None (occurrence: None)
  Receive Date: 20090514
  Receipt Date: 20090507
  Transmission Date: 20091009
  Serious: Yes (Hospitalization)
  Sender: FDA-Public Use
  Company Number: IT-AVENTIS-200912448EU

PATIENT
  Age: 87 Year
  Sex: Male

DRUGS (5)
  1. TRIATEC                            /00885601/ [Suspect]
     Indication: CARDIOMYOPATHY
     Route: 048
     Dates: start: 20080101, end: 20090410
  2. LASIX [Suspect]
     Indication: CARDIOMYOPATHY
     Route: 048
     Dates: start: 20080101, end: 20090410
  3. ALDACTONE [Suspect]
     Indication: CARDIOMYOPATHY
     Route: 048
     Dates: start: 20080101, end: 20090409
  4. GLIBOMET [Concomitant]
     Indication: DIABETES MELLITUS
     Route: 048
     Dates: start: 20080101, end: 20090410
  5. ASPIRIN [Concomitant]
     Indication: CARDIOMYOPATHY
     Route: 048
     Dates: start: 20080101, end: 20090409

REACTIONS (4)
  - CONFUSIONAL STATE [None]
  - GENERAL PHYSICAL HEALTH DETERIORATION [None]
  - HYPERTHERMIA [None]
  - RENAL FAILURE [None]
